FAERS Safety Report 6751742-4 (Version None)
Quarter: 2010Q2

REPORT INFORMATION
  Report Type: 
  Country: None (occurrence: None)
  Receive Date: 20100528
  Receipt Date: 20100514
  Transmission Date: 20101027
  Serious: Yes (Hospitalization)
  Sender: FDA-Public Use
  Company Number: 012356

PATIENT
  Sex: Female

DRUGS (9)
  1. ROTIGOTINE (ROTIGOTINE) [Suspect]
     Indication: PARKINSON'S DISEASE
     Dosage: (4.5 MG), (9 MG)
     Dates: start: 20100506
  2. ROTIGOTINE (ROTIGOTINE) [Suspect]
     Indication: PARKINSON'S DISEASE
     Dosage: (4.5 MG), (9 MG)
     Dates: start: 20100513
  3. AMANTADINE HYDROCHLORIDE [Concomitant]
  4. ZONISAMIDE [Concomitant]
  5. MAGNESIUM OXIDE [Concomitant]
  6. SENNA ALEXANDRINA EXTRACT [Concomitant]
  7. OTHER COLD COMBINATION PREPARATIONS [Concomitant]
  8. DEXTROMETHORPHAN HYDROBROMIDE [Concomitant]
  9. CARBIDOPA + LEVODOPA [Concomitant]

REACTIONS (3)
  - FALL [None]
  - FEMUR FRACTURE [None]
  - PYREXIA [None]
